FAERS Safety Report 25441395 (Version 1)
Quarter: 2025Q2

REPORT INFORMATION
  Report Type: Other
  Country: CN (occurrence: CN)
  Receive Date: 20250616
  Receipt Date: 20250616
  Transmission Date: 20250717
  Serious: Yes (Hospitalization, Other)
  Sender: XGEN PHARMACEUTICALS DJB, INC.
  Company Number: CN-XGen Pharmaceuticals DJB, Inc.-2178794

PATIENT
  Age: 35 Year
  Sex: Male

DRUGS (2)
  1. TRANEXAMIC ACID [Suspect]
     Active Substance: TRANEXAMIC ACID
  2. VANCOMYCIN HYDROCHLORIDE [Concomitant]
     Active Substance: VANCOMYCIN HYDROCHLORIDE

REACTIONS (2)
  - Blindness [Recovered/Resolved]
  - Off label use [Recovered/Resolved]
